FAERS Safety Report 24814360 (Version 1)
Quarter: 2025Q1

REPORT INFORMATION
  Report Type: Spontaneous
  Country: US (occurrence: None)
  Receive Date: 20250106
  Receipt Date: 20250106
  Transmission Date: 20250408
  Serious: Yes (Other)
  Sender: FDA-CTU
  Company Number: None

PATIENT
  Age: 77 Year
  Sex: Male

DRUGS (5)
  1. TASIGNA [Suspect]
     Active Substance: NILOTINIB
     Indication: Leukaemia
     Route: 048
     Dates: start: 202310
  2. SIMPONI [Concomitant]
     Active Substance: GOLIMUMAB
  3. CDB GUMMY [Concomitant]
  4. VITAMIN B-1 100MG TABLETS [Concomitant]
  5. VITAMIN D 1,000IU SOFTGELS [Concomitant]

REACTIONS (2)
  - Atrial fibrillation [None]
  - Therapy interrupted [None]

NARRATIVE: CASE EVENT DATE: 20250101
